FAERS Safety Report 5067553-4 (Version None)
Quarter: 2006Q3

REPORT INFORMATION
  Report Type: 
  Country: None (occurrence: None)
  Receive Date: 20060731
  Receipt Date: 20060710
  Transmission Date: 20061208
  Serious: Yes (Hospitalization)
  Sender: FDA-Public Use
  Company Number: US200607001505

PATIENT
  Age: 54 Year
  Sex: Female

DRUGS (5)
  1. CYMBALTA [Suspect]
     Indication: DEPRESSION
     Dosage: SEE IMAGE
     Dates: start: 20050101
  2. EVISTA [Concomitant]
  3. ZOCOR [Concomitant]
  4. MORPHINE [Concomitant]
  5. KLONOPIN [Concomitant]

REACTIONS (3)
  - CONTUSION [None]
  - INTESTINAL OBSTRUCTION [None]
  - SKIN HAEMORRHAGE [None]
